FAERS Safety Report 11693026 (Version 1)
Quarter: 2015Q4

REPORT INFORMATION
  Report Type: Spontaneous
  Country: CN (occurrence: CN)
  Receive Date: 20151103
  Receipt Date: 20151103
  Transmission Date: 20160304
  Serious: Yes (Disabling)
  Sender: FDA-Public Use
  Company Number: CN-BRISTOL-MYERS SQUIBB COMPANY-BMS-2015-073184

PATIENT
  Age: 52 Year
  Sex: Male
  Weight: 60 kg

DRUGS (4)
  1. REPAGLINIDE. [Suspect]
     Active Substance: REPAGLINIDE
     Indication: TYPE 2 DIABETES MELLITUS
     Dosage: 2 MG, TID
     Route: 048
     Dates: start: 20150127, end: 20150202
  2. CEREBROPROTEIN HYDROLYSATE [Concomitant]
     Active Substance: PROTEIN HYDROLYSATE
     Indication: CEREBRAL INFARCTION
     Dosage: 91.5 MG, QD
     Route: 042
     Dates: start: 20150129, end: 20150203
  3. GLUCOPHAGE [Suspect]
     Active Substance: METFORMIN HYDROCHLORIDE
     Indication: TYPE 2 DIABETES MELLITUS
     Dosage: 500 MG, TID
     Route: 048
     Dates: start: 20150127, end: 20150202
  4. INSULIN GLARGINE [Concomitant]
     Active Substance: INSULIN GLARGINE
     Indication: TYPE 2 DIABETES MELLITUS
     Dosage: 8 UNIT, QD
     Route: 058
     Dates: start: 20150128, end: 20150204

REACTIONS (1)
  - Hepatic function abnormal [Recovering/Resolving]

NARRATIVE: CASE EVENT DATE: 20150131
